FAERS Safety Report 7004299-7 (Version None)
Quarter: 2010Q3

REPORT INFORMATION
  Report Type: 
  Country: None (occurrence: None)
  Receive Date: 20100921
  Receipt Date: 20100907
  Transmission Date: 20110219
  Serious: Yes (Hospitalization)
  Sender: FDA-Public Use
  Company Number: DE-BIOGENIDEC-2010BI022097

PATIENT
  Age: 44 Year
  Sex: Female
  Weight: 103 kg

DRUGS (1)
  1. AVONEX [Suspect]
     Indication: RELAPSING-REMITTING MULTIPLE SCLEROSIS
     Route: 030
     Dates: start: 20090616

REACTIONS (2)
  - INJECTION SITE HAEMORRHAGE [None]
  - URETERIC STENOSIS [None]
